FAERS Safety Report 18312592 (Version 1)
Quarter: 2020Q3

REPORT INFORMATION
  Report Type: Spontaneous
  Country: US (occurrence: US)
  Receive Date: 20200925
  Receipt Date: 20200925
  Transmission Date: 20201103
  Serious: No
  Sender: FDA-Public Use
  Company Number: US-ELI_LILLY_AND_COMPANY-US202009004125

PATIENT
  Age: 17 Year
  Sex: Male

DRUGS (1)
  1. HUMALOG [Suspect]
     Active Substance: INSULIN LISPRO
     Indication: DIABETES MELLITUS
     Dosage: 10 U, UNKNOWN
     Route: 065
     Dates: start: 202005

REACTIONS (3)
  - Blood glucose increased [Recovered/Resolved]
  - Blood glucose increased [Recovered/Resolved]
  - Accidental underdose [Unknown]

NARRATIVE: CASE EVENT DATE: 202008
